FAERS Safety Report 15075985 (Version 1)
Quarter: 2018Q2

REPORT INFORMATION
  Report Type: Report from Study
  Country: BR (occurrence: BR)
  Receive Date: 20180627
  Receipt Date: 20180627
  Transmission Date: 20180711
  Serious: Yes (Other)
  Sender: FDA-Public Use
  Company Number: PHHY2018BR031009

PATIENT
  Sex: Female
  Weight: 77 kg

DRUGS (7)
  1. ALPRAZOLAM. [Suspect]
     Active Substance: ALPRAZOLAM
     Indication: PRODUCT USED FOR UNKNOWN INDICATION
     Dosage: UNK
     Route: 065
  2. DOGMATIL [Suspect]
     Active Substance: SULPIRIDE
     Indication: BIPOLAR DISORDER
     Dosage: 2 DF, QN (FROM 30 YEARS AGO)
     Route: 048
  3. OLCADIL [Suspect]
     Active Substance: CLOXAZOLAM
     Indication: PANIC DISORDER
     Dosage: 1 DF (2 MG), QD (1 DOSE AT NIGHT, BEFORE GOING TO BED )
     Route: 048
  4. OLCADIL [Suspect]
     Active Substance: CLOXAZOLAM
     Indication: BIPOLAR DISORDER
     Dosage: 1 DF (2 MG), QD (EVERY DAY AT NIGHT)
     Route: 048
  5. CLOXAZOLAM [Suspect]
     Active Substance: CLOXAZOLAM
     Indication: BIPOLAR DISORDER
     Dosage: 1 MG, QD (EVERY NIGHT)
     Route: 048
  6. DOGMATIL [Suspect]
     Active Substance: SULPIRIDE
     Indication: PANIC DISORDER
  7. CLOXAZOLAM [Suspect]
     Active Substance: CLOXAZOLAM
     Indication: PANIC DISORDER

REACTIONS (5)
  - Diabetes mellitus [Recovering/Resolving]
  - Tremor [Unknown]
  - Drug ineffective [Unknown]
  - Malaise [Unknown]
  - Feeling abnormal [Not Recovered/Not Resolved]
